FAERS Safety Report 5895074-5 (Version None)
Quarter: 2008Q3

REPORT INFORMATION
  Report Type: 
  Country: None (occurrence: None)
  Receive Date: 20080924
  Receipt Date: 20080915
  Transmission Date: 20090109
  Serious: Yes (Hospitalization)
  Sender: FDA-Public Use
  Company Number: US-WATSON-2008-05496

PATIENT
  Age: 26 Week
  Sex: Female
  Weight: 0.64 kg

DRUGS (1)
  1. LABETALOL (WATSON LABORATORIES) [Suspect]
     Indication: PRE-ECLAMPSIA
     Dosage: 300MG PO BID, MOTHER'S DOSE. (CORRESPONDS TO 100 MG/KG/DAY TRANSMAMMARY FOR INFANT)
     Route: 063
     Dates: start: 20080101, end: 20080101

REACTIONS (2)
  - BRADYCARDIA [None]
  - SUPRAVENTRICULAR EXTRASYSTOLES [None]
